FAERS Safety Report 19182949 (Version 1)
Quarter: 2021Q2

REPORT INFORMATION
  Report Type: Spontaneous
  Country: US (occurrence: US)
  Receive Date: 20210427
  Receipt Date: 20210427
  Transmission Date: 20210717
  Serious: Yes (Hospitalization, Other)
  Sender: FDA-Public Use
  Company Number: US-AMGEN-USASP2021060831

PATIENT
  Age: 65 Year
  Sex: Male

DRUGS (14)
  1. PERFUSAMINE [Concomitant]
     Active Substance: IOFETAMINE HYDROCHLORIDE I-123
  2. NEO MINOPHAGEN C [CYSTEINE HYDROCHLORIDE;GLYCINE;GLYCYRRHIZIC ACID, AM [Concomitant]
     Dosage: UNK
     Dates: start: 20200906
  3. TELMISARTAN. [Concomitant]
     Active Substance: TELMISARTAN
  4. PLAVIX [Suspect]
     Active Substance: CLOPIDOGREL BISULFATE
     Indication: PRODUCT USED FOR UNKNOWN INDICATION
     Dosage: UNK
     Route: 065
     Dates: start: 20200826
  5. EZETIMIBE. [Concomitant]
     Active Substance: EZETIMIBE
  6. EPADEL?S [Concomitant]
     Active Substance: ICOSAPENT ETHYL
  7. PLETAAL [Suspect]
     Active Substance: CILOSTAZOL
     Indication: PRODUCT USED FOR UNKNOWN INDICATION
     Dosage: UNK
     Route: 065
  8. REPATHA [Suspect]
     Active Substance: EVOLOCUMAB
     Indication: PRODUCT USED FOR UNKNOWN INDICATION
     Dosage: UNK
     Route: 065
     Dates: start: 20200903, end: 20200907
  9. LANSOPRAZOLE. [Concomitant]
     Active Substance: LANSOPRAZOLE
  10. BEZAFIBRATE [Concomitant]
     Active Substance: BEZAFIBRATE
  11. TRAZENTA [Concomitant]
     Active Substance: LINAGLIPTIN
  12. BEPOTASTINE BESILATE [Concomitant]
     Active Substance: BEPOTASTINE BESYLATE
  13. SALINE [SODIUM CHLORIDE] [Concomitant]
     Active Substance: SODIUM CHLORIDE
  14. METFORMIN HYDROCHLORIDE. [Concomitant]
     Active Substance: METFORMIN HYDROCHLORIDE

REACTIONS (1)
  - Erythema multiforme [Recovered/Resolved]

NARRATIVE: CASE EVENT DATE: 20200903
